FAERS Safety Report 6348862-5 (Version None)
Quarter: 2009Q3

REPORT INFORMATION
  Report Type: 
  Country: None (occurrence: None)
  Receive Date: 20090911
  Receipt Date: 20090908
  Transmission Date: 20100115
  Serious: Yes (Hospitalization)
  Sender: FDA-Public Use
  Company Number: US-B.I. PHARMACEUTICALS,INC./RIDGEFIELD-2009-BP-10063BP

PATIENT
  Sex: Female

DRUGS (4)
  1. SPIRIVA [Suspect]
     Indication: CHRONIC OBSTRUCTIVE PULMONARY DISEASE
     Dosage: 18 MCG
     Route: 055
     Dates: start: 20060101
  2. AGGRENOX [Concomitant]
     Indication: CEREBROVASCULAR ACCIDENT PROPHYLAXIS
     Dates: start: 19990101
  3. LOTREL [Concomitant]
     Indication: HYPERTENSION
     Dates: start: 19850101
  4. VYTORIN [Concomitant]
     Indication: BLOOD CHOLESTEROL INCREASED
     Dates: start: 19990101

REACTIONS (4)
  - CATARACT [None]
  - DYSPNOEA EXERTIONAL [None]
  - PNEUMONIA [None]
  - PNEUMONIA STAPHYLOCOCCAL [None]
